FAERS Safety Report 11877485 (Version 1)
Quarter: 2015Q4

REPORT INFORMATION
  Report Type: Spontaneous
  Country: FR (occurrence: FR)
  Receive Date: 20151229
  Receipt Date: 20151229
  Transmission Date: 20160305
  Serious: Yes (Congenital Anomaly, Other)
  Sender: FDA-Public Use
  Company Number: FR-JNJFOC-20151218487

PATIENT
  Age: 0 Year
  Sex: Female

DRUGS (4)
  1. ZYRTEC [Suspect]
     Active Substance: CETIRIZINE HYDROCHLORIDE
     Route: 064
  2. DEROXAT [Suspect]
     Active Substance: PAROXETINE HYDROCHLORIDE
     Indication: DEPRESSION
     Route: 064
  3. MADOPAR [Suspect]
     Active Substance: BENSERAZIDE HYDROCHLORIDE\LEVODOPA
     Indication: PRODUCT USED FOR UNKNOWN INDICATION
     Route: 064
  4. ZYRTEC [Suspect]
     Active Substance: CETIRIZINE HYDROCHLORIDE
     Indication: PRODUCT USED FOR UNKNOWN INDICATION
     Route: 064

REACTIONS (20)
  - Polyhydramnios [Unknown]
  - Foetal exposure during pregnancy [Unknown]
  - Hypotonia neonatal [None]
  - Dysmorphism [None]
  - Dysmorphism [Not Recovered/Not Resolved]
  - Patent ductus arteriosus [Unknown]
  - Maternal drugs affecting foetus [None]
  - Rib deformity [None]
  - Neck deformity [None]
  - Caesarean section [None]
  - Dysphagia [None]
  - Neurodevelopmental disorder [Unknown]
  - Arrhythmia [Unknown]
  - Bone disorder [None]
  - Low set ears [None]
  - Growth retardation [Unknown]
  - Hypotonia [Not Recovered/Not Resolved]
  - Anorectal disorder [Unknown]
  - Eating disorder [None]
  - Lip disorder [None]

NARRATIVE: CASE EVENT DATE: 2015
